FAERS Safety Report 25924296 (Version 1)
Quarter: 2025Q4

REPORT INFORMATION
  Report Type: Report from Study
  Country: US (occurrence: US)
  Receive Date: 20251015
  Receipt Date: 20251015
  Transmission Date: 20260118
  Serious: Yes (Other)
  Sender: PFIZER
  Company Number: US-PFIZER INC-PV202500120245

PATIENT
  Age: 27 Year
  Sex: Female

DRUGS (2)
  1. ERYTHROMYCIN [Suspect]
     Active Substance: ERYTHROMYCIN
     Indication: Borrelia infection
     Dosage: 500 MG, ONE DOSE
     Dates: start: 1980, end: 1980
  2. CEFAMANDOLE [Suspect]
     Active Substance: CEFAMANDOLE
     Indication: Borrelia infection
     Dosage: UNK
     Dates: start: 1980

REACTIONS (3)
  - Maternal exposure during pregnancy [Unknown]
  - Jarisch-Herxheimer reaction [Unknown]
  - Treatment failure [Recovered/Resolved]

NARRATIVE: CASE EVENT DATE: 19800101
